FAERS Safety Report 25431675 (Version 1)
Quarter: 2025Q2

REPORT INFORMATION
  Report Type: Spontaneous
  Country: GB (occurrence: GB)
  Receive Date: 20250613
  Receipt Date: 20250613
  Transmission Date: 20250717
  Serious: Yes (Hospitalization, Other)
  Sender: B BRAUN
  Company Number: GB-B.Braun Medical Inc.-2178528

PATIENT
  Sex: Female
  Weight: 89 kg

DRUGS (28)
  1. ACETAMINOPHEN [Suspect]
     Active Substance: ACETAMINOPHEN
     Indication: Diffuse large B-cell lymphoma refractory
  2. DAPAGLIFLOZIN [Concomitant]
     Active Substance: DAPAGLIFLOZIN
  3. GRANULOCYTE COLONY-STIMULATING FACTOR NOS [Suspect]
     Active Substance: GRANULOCYTE COLONY-STIMULATING FACTOR NOS
  4. PLERIXAFOR [Suspect]
     Active Substance: PLERIXAFOR
  5. CYTARABINE [Suspect]
     Active Substance: CYTARABINE
  6. CARMUSTINE [Suspect]
     Active Substance: CARMUSTINE
  7. ETOPOSIDE [Suspect]
     Active Substance: ETOPOSIDE
  8. CARBOPLATIN [Suspect]
     Active Substance: CARBOPLATIN
  9. IFOSFAMIDE [Suspect]
     Active Substance: IFOSFAMIDE
  10. RITUXIMAB [Suspect]
     Active Substance: RITUXIMAB
  11. PEMBROLIZUMAB [Suspect]
     Active Substance: PEMBROLIZUMAB
  12. SIMVASTATIN [Suspect]
     Active Substance: SIMVASTATIN
  13. POTASSIUM BICARBONATE\POTASSIUM CHLORIDE [Concomitant]
     Active Substance: POTASSIUM BICARBONATE\POTASSIUM CHLORIDE
  14. OXETACAINE [Concomitant]
     Active Substance: OXETHAZAINE
  15. ONDANSETRON HYDROCHLORIDE [Concomitant]
     Active Substance: ONDANSETRON HYDROCHLORIDE
  16. METFORMIN [Concomitant]
     Active Substance: METFORMIN HYDROCHLORIDE
  17. LOPERAMIDE [Concomitant]
     Active Substance: LOPERAMIDE
  18. BUTYLSCOPOLAMINE BROMIDE [Concomitant]
     Active Substance: BUTYLSCOPOLAMINE BROMIDE
  19. FAMOTIDINE [Concomitant]
     Active Substance: FAMOTIDINE
  20. CODEINE PHOSPHATE [Concomitant]
     Active Substance: CODEINE PHOSPHATE
  21. COTRIMOXAZOLE [Concomitant]
     Active Substance: SULFAMETHOXAZOLE\TRIMETHOPRIM
  22. ACYCLOVIR [Concomitant]
     Active Substance: ACYCLOVIR
  23. CHOLECALCIFEROL [Concomitant]
     Active Substance: CHOLECALCIFEROL
  24. TRESIBA [Concomitant]
     Active Substance: INSULIN DEGLUDEC
  25. OMEPRAZOLE [Concomitant]
     Active Substance: OMEPRAZOLE
  26. NOVORAPID [Concomitant]
     Active Substance: INSULIN ASPART
  27. INDAPAMIDE [Concomitant]
     Active Substance: INDAPAMIDE
  28. GLUCOPHAGE [Concomitant]
     Active Substance: METFORMIN HYDROCHLORIDE

REACTIONS (6)
  - Dyspnoea [Recovered/Resolved]
  - Mobility decreased [Not Recovered/Not Resolved]
  - Alanine aminotransferase increased [Not Recovered/Not Resolved]
  - Colitis [Recovered/Resolved with Sequelae]
  - Acute respiratory distress syndrome [Not Recovered/Not Resolved]
  - Acute kidney injury [Recovered/Resolved with Sequelae]
